FAERS Safety Report 7572740-7 (Version None)
Quarter: 2011Q2

REPORT INFORMATION
  Report Type: 
  Country: None (occurrence: None)
  Receive Date: 20110627
  Receipt Date: 20110620
  Transmission Date: 20111010
  Serious: Yes (Death, Other)
  Sender: FDA-Public Use
  Company Number: KR-GENZYME-FLUD-1001120

PATIENT

DRUGS (16)
  1. CYCLOSPORINE [Concomitant]
     Dosage: UNK, STARTING 30 TO 60 DAYS AFTER HCT DOSE, DECREASED BY 10% EVERY 2 TO 4 WEEKS IF NO EVIDENCE GVHD
     Route: 048
  2. CIPROFLOXACIN [Concomitant]
     Indication: SUPPORTIVE CARE
     Dosage: UNK
     Route: 048
  3. GRANULOCYTE COLONY STIMULATING FACTOR [Concomitant]
     Indication: SUPPORTIVE CARE
     Dosage: 450 MCG, QD,  STARTING ON DAY 5 OF HCT
     Route: 042
  4. METHOTREXATE [Concomitant]
     Indication: PROPHYLAXIS AGAINST GRAFT VERSUS HOST DISEASE
     Dosage: 15 MG/M2, QD X 1
     Route: 042
  5. METHOTREXATE [Concomitant]
     Dosage: 10 MG/M2, QDX3 ON DAYS 3, 6, AND 11 DAYS AFTER LAST DONOR CELL INFUSION
     Route: 042
  6. THYMOGLOBULIN [Concomitant]
     Indication: HAEMATOLOGICAL MALIGNANCY
  7. ECHINOCANDIN [Concomitant]
     Indication: ANTIFUNGAL TREATMENT
     Dosage: UNK, FROM THE START OF CONDITIONING THERAPY
     Route: 042
  8. BUSULFAN [Suspect]
     Indication: HAEMATOLOGICAL MALIGNANCY
  9. CYCLOSPORINE [Concomitant]
     Indication: PROPHYLAXIS AGAINST GRAFT VERSUS HOST DISEASE
     Dosage: 1.5 MG/KG, Q12HR STARTING ON DAY -1
     Route: 042
  10. DIPHENYLHYDANTOIN [Concomitant]
     Indication: SUPPORTIVE CARE
     Dosage: UNK, DURING BUSULFAN ADMINISTRATION
     Route: 042
  11. FLUDARA [Suspect]
     Indication: HAEMATOLOGICAL MALIGNANCY
  12. FLUCONAZOLE [Concomitant]
     Indication: ANTIFUNGAL TREATMENT
     Dosage: UNK, FROM THE START OF CONDITIONING THERAPY
     Route: 048
  13. FLUDARA [Suspect]
     Indication: STEM CELL TRANSPLANT
     Dosage: 30 MG/M2, QD  ON DAYS -7 TO -2
     Route: 042
  14. BUSULFAN [Suspect]
     Indication: STEM CELL TRANSPLANT
     Dosage: 3.2 MG/KG, QD ON DAYS -7 AND -6 (DAY 0 BEING THE FIRST DAY OF DONOR)
     Route: 042
  15. THYMOGLOBULIN [Concomitant]
     Indication: STEM CELL TRANSPLANT
     Dosage: 3 MG/KG, QDX3 ON DAYS -4 TO -2
     Route: 042
  16. POLYGAM S/D [Concomitant]
     Indication: SUPPORTIVE CARE
     Dosage: 0.5 G/KG, ON DAYS -7 OR 7 OF HCT, QOW UNTIL DAY 120, AND MONTHLY UNTIL 180 DAYS
     Route: 042

REACTIONS (15)
  - LEUKAEMIA [None]
  - ACUTE GRAFT VERSUS HOST DISEASE [None]
  - CYTOMEGALOVIRUS GASTROENTERITIS [None]
  - PULMONARY TUBERCULOSIS [None]
  - CHRONIC GRAFT VERSUS HOST DISEASE [None]
  - HODGKIN'S DISEASE [None]
  - HERPES ZOSTER [None]
  - VOMITING [None]
  - ENGRAFT FAILURE [None]
  - STOMATITIS [None]
  - NAUSEA [None]
  - VENOOCCLUSIVE LIVER DISEASE [None]
  - MALE GENITAL TRACT TUBERCULOSIS [None]
  - DIARRHOEA [None]
  - PNEUMONIA CYTOMEGALOVIRAL [None]
